FAERS Safety Report 7765965-9 (Version None)
Quarter: 2011Q3

REPORT INFORMATION
  Report Type: 
  Country: None (occurrence: None)
  Receive Date: 20110921
  Receipt Date: 20110203
  Transmission Date: 20111222
  Serious: No
  Sender: FDA-Public Use
  Company Number: PHHY2010DE87517

PATIENT
  Sex: Male
  Weight: 132 kg

DRUGS (8)
  1. MARCUMAR [Concomitant]
     Dosage: 3 MG, UNK
     Dates: start: 20030101
  2. LEVOTHYROXINE SODIUM [Concomitant]
     Indication: HYPOTHYROIDISM
     Dosage: 150 UG, QD
     Route: 048
  3. METOPROLOL SUCCINATE [Concomitant]
     Indication: HYPERTENSION
     Dosage: 95 MG, QD
     Route: 048
  4. MARCUMAR [Concomitant]
     Indication: AORTIC VALVE REPLACEMENT
     Dosage: 1 MG, UNK
     Dates: start: 20030101
  5. AMIODARONE HCL [Concomitant]
     Indication: TACHYARRHYTHMIA
     Dosage: 200 MG, QD
     Route: 048
  6. TASIGNA [Suspect]
     Indication: CHRONIC MYELOID LEUKAEMIA
     Dosage: 800 MG, PER DAY
     Route: 048
     Dates: start: 20101201
  7. FEBUXOSTAT [Concomitant]
     Indication: HYPERURICAEMIA
     Dosage: 120 MG, QD
     Route: 048
     Dates: start: 20101001
  8. MARCUMAR [Concomitant]
     Dosage: 5 MG, ALTERNATING DAILY BASED
     Route: 048

REACTIONS (3)
  - BLOOD TEST ABNORMAL [None]
  - INTERNATIONAL NORMALISED RATIO FLUCTUATION [None]
  - PROTHROMBIN TIME PROLONGED [None]
